FAERS Safety Report 19901513 (Version 1)
Quarter: 2021Q3

REPORT INFORMATION
  Report Type: Spontaneous
  Country: IN (occurrence: IN)
  Receive Date: 20210930
  Receipt Date: 20210930
  Transmission Date: 20211014
  Serious: Yes (Death)
  Sender: FDA-Public Use
  Company Number: IN-PFIZER INC-202101082889

PATIENT
  Age: 66 Year
  Sex: Female

DRUGS (5)
  1. LETROZOLE. [Concomitant]
     Active Substance: LETROZOLE
     Dosage: 2.5 MG, 1X/DAY
  2. WYSOLONE [Concomitant]
     Active Substance: PREDNISOLONE
     Dosage: 5 MG, 2X/DAY
  3. PAN D [CAMPHOR;GLYCEROL;MENTHOL;ZINC OXIDE] [Concomitant]
     Dosage: UNK, 1X/DAY
  4. PALBACE [Suspect]
     Active Substance: PALBOCICLIB
     Dosage: 125 MG, 1X/DAY
     Route: 048
     Dates: start: 20210629
  5. MUCAINE [ALUMINIUM HYDROXIDE GEL;MAGNESIUM HYDROXIDE;OXETACAINE] [Concomitant]
     Dosage: UNK, 4X/DAY

REACTIONS (4)
  - Asthenia [Unknown]
  - Tremor [Unknown]
  - Off label use [Unknown]
  - Death [Fatal]
